FAERS Safety Report 6676833-8 (Version None)
Quarter: 2010Q2

REPORT INFORMATION
  Report Type: 
  Country: None (occurrence: None)
  Receive Date: 20100412
  Receipt Date: 20100311
  Transmission Date: 20101027
  Serious: Yes (Death, Hospitalization)
  Sender: FDA-Public Use
  Company Number: GB-ROCHE-695611

PATIENT
  Age: 30 Year
  Sex: Male

DRUGS (1)
  1. CAPECITABINE [Suspect]
     Route: 048

REACTIONS (5)
  - INTESTINAL FISTULA [None]
  - PELVIC ABSCESS [None]
  - PNEUMONIA PRIMARY ATYPICAL [None]
  - SEPSIS [None]
  - SHOCK HAEMORRHAGIC [None]
